FAERS Safety Report 18805757 (Version 1)
Quarter: 2021Q1

REPORT INFORMATION
  Report Type: Spontaneous
  Country: US (occurrence: US)
  Receive Date: 20210128
  Receipt Date: 20210128
  Transmission Date: 20210419
  Serious: Yes (Hospitalization)
  Sender: FDA-Public Use
  Company Number: US-TEVA-2021-US-1872164

PATIENT
  Age: 61 Year
  Sex: Female

DRUGS (3)
  1. HYDROXOCOBALAMIN [Suspect]
     Active Substance: HYDROXOCOBALAMIN
     Indication: BLOOD CYANIDE INCREASED
  2. SODIUM NITROPRUSSIDE. [Suspect]
     Active Substance: SODIUM NITROPRUSSIDE
     Indication: HYPERTENSION
     Route: 065
  3. HYDROXOCOBALAMIN [Suspect]
     Active Substance: HYDROXOCOBALAMIN
     Indication: TOXICITY TO VARIOUS AGENTS
     Route: 042

REACTIONS (3)
  - Tissue discolouration [Recovered/Resolved]
  - Blood cyanide increased [Unknown]
  - Toxicity to various agents [Unknown]
